FAERS Safety Report 13940243 (Version 1)
Quarter: 2017Q3

REPORT INFORMATION
  Report Type: Spontaneous
  Country: US (occurrence: None)
  Receive Date: 20170906
  Receipt Date: 20170906
  Transmission Date: 20171127
  Serious: Yes (Other)
  Sender: FDA-Public Use
  Company Number: None

PATIENT
  Age: 63 Year
  Sex: Female
  Weight: 66.68 kg

DRUGS (3)
  1. ROSUVASTATIN 20 MG TAB, 20 MG ACTAVIS/ARROW PHARM [Suspect]
     Active Substance: ROSUVASTATIN
     Indication: HYPERLIPIDAEMIA
     Route: 048
     Dates: start: 20170707, end: 20170822
  2. ATORVASTATIN [Concomitant]
     Active Substance: ATORVASTATIN
  3. SIMVASTATIN. [Concomitant]
     Active Substance: SIMVASTATIN

REACTIONS (2)
  - Myalgia [None]
  - Fatigue [None]

NARRATIVE: CASE EVENT DATE: 20170822
